FAERS Safety Report 7402515-0 (Version None)
Quarter: 2011Q2

REPORT INFORMATION
  Report Type: 
  Country: None (occurrence: None)
  Receive Date: 20110408
  Receipt Date: 20110405
  Transmission Date: 20111010
  Serious: Yes (Death, Other)
  Sender: FDA-Public Use
  Company Number: PHHY2011VE27948

PATIENT
  Age: 79 Year
  Sex: Female

DRUGS (2)
  1. VITAMINS [Concomitant]
  2. DIOVAN HCT [Suspect]
     Indication: HYPERTENSION
     Dosage: 160/12.5 MG
     Route: 048

REACTIONS (5)
  - CHEST PAIN [None]
  - RESPIRATORY ARREST [None]
  - ANGINA PECTORIS [None]
  - MYOCARDIAL INFARCTION [None]
  - RESPIRATORY FAILURE [None]
